FAERS Safety Report 19479100 (Version 2)
Quarter: 2021Q3

REPORT INFORMATION
  Report Type: Spontaneous
  Country: US (occurrence: US)
  Receive Date: 20210701
  Receipt Date: 20210816
  Transmission Date: 20211014
  Serious: No
  Sender: FDA-Public Use
  Company Number: US-ASTRAZENECA-2021A514951

PATIENT
  Sex: Male
  Weight: 95.3 kg

DRUGS (2)
  1. BUDESONIDE AND FORMOTEROL [Suspect]
     Active Substance: BUDESONIDE\FORMOTEROL
     Indication: BRONCHITIS
     Dosage: 80/4.5MCG 1 PUFF TWICE A DAY
     Route: 055
     Dates: start: 20210119
  2. BUDESONIDE AND FORMOTEROL [Suspect]
     Active Substance: BUDESONIDE\FORMOTEROL
     Indication: DYSPNOEA
     Dosage: 80/4.5MCG 1 PUFF TWICE A DAY
     Route: 055
     Dates: start: 20210119

REACTIONS (3)
  - Product use issue [Unknown]
  - Drug delivery system malfunction [Unknown]
  - Therapeutic product effect decreased [Unknown]
